FAERS Safety Report 9822762 (Version 2)
Quarter: 2014Q1

REPORT INFORMATION
  Report Type: Spontaneous
  Country: US (occurrence: US)
  Receive Date: 20140116
  Receipt Date: 20140203
  Transmission Date: 20141002
  Serious: Yes (Death, Hospitalization, Other)
  Sender: FDA-Public Use
  Company Number: US-ABBVIE-14P-163-1191038-00

PATIENT
  Sex: Male

DRUGS (2)
  1. SYNTHROID [Suspect]
     Indication: HYPOTHYROIDISM
  2. UNKNOWN ANESTHESIA [Suspect]
     Indication: SURGERY
     Dates: start: 2009, end: 2009

REACTIONS (6)
  - Cerebrovascular accident [Fatal]
  - Anaesthetic complication [Unknown]
  - Haemorrhoidal haemorrhage [Recovered/Resolved]
  - Pruritus [Recovered/Resolved]
  - Erythema [Recovered/Resolved]
  - Skin disorder [Recovered/Resolved]
